FAERS Safety Report 5765305-0 (Version None)
Quarter: 2008Q2

REPORT INFORMATION
  Report Type: 
  Country: None (occurrence: None)
  Receive Date: 20080602
  Receipt Date: 20080108
  Transmission Date: 20081010
  Serious: No
  Sender: FDA-Public Use
  Company Number: PHEH2008US00738

PATIENT

DRUGS (2)
  1. TEKTURNA [Suspect]
  2. ZEGERID [Suspect]

REACTIONS (1)
  - LICHEN PLANUS [None]
